FAERS Safety Report 7509842-7 (Version None)
Quarter: 2011Q2

REPORT INFORMATION
  Report Type: 
  Country: None (occurrence: None)
  Receive Date: 20110527
  Receipt Date: 20110520
  Transmission Date: 20111010
  Serious: Yes (Hospitalization)
  Sender: FDA-Public Use
  Company Number: B0583369A

PATIENT
  Sex: Male

DRUGS (6)
  1. REQUIP [Suspect]
     Indication: PARKINSON'S DISEASE
     Route: 048
     Dates: start: 20020101, end: 20060101
  2. SINEMET [Suspect]
     Indication: PARKINSON'S DISEASE
     Dosage: 1UNIT FIVE TIMES PER DAY
     Route: 048
     Dates: start: 20060101
  3. CLOZAPINE [Concomitant]
     Indication: PARKINSON'S DISEASE
     Dosage: 18.75MG PER DAY
     Route: 048
     Dates: start: 20090101
  4. REQUIP [Suspect]
     Indication: PARKINSON'S DISEASE
     Route: 048
     Dates: start: 20060101, end: 20110218
  5. AZILECT [Suspect]
     Indication: PARKINSON'S DISEASE
     Dosage: 1MG PER DAY
     Route: 048
     Dates: start: 20100901, end: 20110218
  6. ATACAND [Concomitant]
     Dosage: 4MG PER DAY
     Route: 048

REACTIONS (4)
  - PATHOLOGICAL GAMBLING [None]
  - SLEEP DISORDER [None]
  - DOPAMINE DYSREGULATION SYNDROME [None]
  - DEPENDENCE [None]
